FAERS Safety Report 24109706 (Version 2)
Quarter: 2024Q4

REPORT INFORMATION
  Report Type: Spontaneous
  Country: US (occurrence: US)
  Receive Date: 20240718
  Receipt Date: 20241009
  Transmission Date: 20250115
  Serious: Yes (Other)
  Sender: PFIZER
  Company Number: US-PFIZER INC-PV202400018798

PATIENT
  Age: 66 Year
  Sex: Male

DRUGS (1)
  1. XELJANZ XR [Suspect]
     Active Substance: TOFACITINIB CITRATE
     Indication: Systemic lupus erythematosus
     Dosage: 11 MG

REACTIONS (3)
  - Rheumatoid arthritis [Recovering/Resolving]
  - Knee operation [Unknown]
  - Off label use [Unknown]
